FAERS Safety Report 20211788 (Version 2)
Quarter: 2022Q1

REPORT INFORMATION
  Report Type: Spontaneous
  Country: JP (occurrence: JP)
  Receive Date: 20211221
  Receipt Date: 20220131
  Transmission Date: 20220423
  Serious: Yes (Hospitalization)
  Sender: FDA-Public Use
  Company Number: JP-JNJFOC-20211240655

PATIENT
  Age: 9 Decade
  Sex: Male

DRUGS (2)
  1. STELARA [Suspect]
     Active Substance: USTEKINUMAB
     Indication: Colitis ulcerative
     Dosage: DOSE UNKNOWN?USTEKINUMAB (GENETICAL RECOMBINATION):130MG
     Route: 041
  2. STELARA [Suspect]
     Active Substance: USTEKINUMAB
     Dosage: DOSE UNKNOWN?USTEKINUMAB (GENETICAL RECOMBINATION):45MG
     Route: 058

REACTIONS (1)
  - Cytomegalovirus infection [Recovered/Resolved]
